FAERS Safety Report 24555386 (Version 1)
Quarter: 2024Q4

REPORT INFORMATION
  Report Type: Spontaneous
  Country: CO (occurrence: CO)
  Receive Date: 20241028
  Receipt Date: 20241028
  Transmission Date: 20250115
  Serious: Yes (Hospitalization, Other)
  Sender: ROCHE
  Company Number: CO-ROCHE-10000114920

PATIENT
  Age: 64 Year
  Sex: Male
  Weight: 63 kg

DRUGS (18)
  1. XELODA [Suspect]
     Active Substance: CAPECITABINE
     Indication: Adenocarcinoma of colon
     Dosage: ON 27-JAN-2023, RECEIVED FIRS TREATMENT.
     Route: 065
  2. BEVACIZUMAB [Suspect]
     Active Substance: BEVACIZUMAB
     Indication: Adenocarcinoma of colon
     Dosage: DOSE AND FREQUENCY WERE NOT REPORTED.?CYCLE #4 BEVACIZUMAB WAS ADDED 13-APR-2023.?ON 16-FEB-2024, RE
     Route: 042
  3. OXALIPLATIN [Suspect]
     Active Substance: OXALIPLATIN
     Indication: Adenocarcinoma of colon
     Dosage: DOSE AND FREQUENCY WERE NOT REPORTED.?ON 27-JAN-2023, RECEIVED FIRST DOSE OF OXALIPLATIN.?ON AN UNKN
     Route: 042
  4. LEUCOVORIN [Concomitant]
     Active Substance: LEUCOVORIN\LEUCOVORIN CALCIUM
     Indication: Adenocarcinoma of colon
     Dosage: DOSE AND FREQUENCY WERE NOT REPORTED?FOLFIRI  + BEVACIZUMAB REGIMEN
     Dates: start: 20240216
  5. LEUCOVORIN [Concomitant]
     Active Substance: LEUCOVORIN\LEUCOVORIN CALCIUM
     Dosage: DOSE AND FREQUENCY WERE NOT REPORTED?FOLFOX+ BEVACIZUMAB REGIMEN
     Dates: start: 20240614
  6. LEUCOVORIN [Concomitant]
     Active Substance: LEUCOVORIN\LEUCOVORIN CALCIUM
     Dosage: DOSE AND FREQUENCY WERE NOT REPORTED
     Dates: start: 20230508
  7. FLUOROURACIL [Concomitant]
     Active Substance: FLUOROURACIL
     Indication: Adenocarcinoma of colon
     Dosage: DOSE AND FREQUENCY WERE NOT REPORTED?FOLFIRI  + BEVACIZUMAB REGIMEN
     Route: 042
     Dates: start: 20240216
  8. FLUOROURACIL [Concomitant]
     Active Substance: FLUOROURACIL
     Dosage: DOSE AND FREQUENCY WERE NOT REPORTED?FOLFOX+ BEVACIZUMAB REGIMEN
     Route: 042
     Dates: start: 20240614
  9. FLUOROURACIL [Concomitant]
     Active Substance: FLUOROURACIL
     Dosage: DOSE AND FREQUENCY WERE NOT REPORTED
     Route: 042
     Dates: start: 20230508
  10. FLUOROURACIL [Concomitant]
     Active Substance: FLUOROURACIL
     Dosage: DAY 1 AND 15
     Route: 042
  11. IRINOTECAN HYDROCHLORIDE [Concomitant]
     Active Substance: IRINOTECAN HYDROCHLORIDE
     Indication: Adenocarcinoma of colon
     Dosage: DOSE AND FREQUENCY WERE NOT REPORTED?FOLFIRI  + BEVACIZUMAB REGIMEN
     Dates: start: 20240216
  12. ONDANSETRON [Concomitant]
     Active Substance: ONDANSETRON
     Dosage: DAY 1 AND 15
     Route: 042
  13. DEXAMETHASONE [Concomitant]
     Active Substance: DEXAMETHASONE
     Dosage: DAY 1 AND 15
     Route: 042
  14. PREDNISONE [Concomitant]
     Active Substance: PREDNISONE
     Route: 048
  15. ONDANSETRON [Concomitant]
     Active Substance: ONDANSETRON
     Indication: Vomiting
     Route: 048
  16. LOPERAMIDE [Concomitant]
     Active Substance: LOPERAMIDE
     Indication: Diarrhoea
     Route: 048
  17. LOSARTAN [Concomitant]
     Active Substance: LOSARTAN
     Route: 048
  18. PREGABALIN [Concomitant]
     Active Substance: PREGABALIN
     Route: 048

REACTIONS (13)
  - Intestinal fistula [Unknown]
  - Intestinal obstruction [Unknown]
  - Asthenia [Unknown]
  - Decreased appetite [Unknown]
  - Pain [Unknown]
  - Somnolence [Unknown]
  - Metastatic neoplasm [Unknown]
  - Retroperitoneal neoplasm metastatic [Unknown]
  - Cholelithiasis [Unknown]
  - Lung neoplasm [Unknown]
  - Neuropathy peripheral [Unknown]
  - Disease progression [Unknown]
  - Tumour marker increased [Unknown]

NARRATIVE: CASE EVENT DATE: 20230101
